FAERS Safety Report 5407401-3 (Version None)
Quarter: 2007Q3

REPORT INFORMATION
  Report Type: 
  Country: None (occurrence: None)
  Receive Date: 20070807
  Receipt Date: 20070802
  Transmission Date: 20080115
  Serious: Yes (Other)
  Sender: FDA-Public Use
  Company Number: FR-ELI_LILLY_AND_COMPANY-FR200608000023

PATIENT
  Age: 62 Year
  Sex: Female

DRUGS (2)
  1. FORTEO [Suspect]
     Indication: OSTEOPOROSIS
     Dosage: 20 UG, DAILY (1/D)
     Route: 058
     Dates: start: 20060523, end: 20070701
  2. PROTEIN SUPPLEMENTS [Concomitant]
     Indication: PROPHYLAXIS
     Dosage: UNK, UNKNOWN
     Route: 065

REACTIONS (7)
  - DYSPEPSIA [None]
  - FAECES DISCOLOURED [None]
  - FATIGUE [None]
  - GASTRIC CANCER [None]
  - PYELECTASIA [None]
  - VOMITING [None]
  - WEIGHT DECREASED [None]
